FAERS Safety Report 23745095 (Version 3)
Quarter: 2024Q2

REPORT INFORMATION
  Report Type: Report from Study
  Country: CA (occurrence: CA)
  Receive Date: 20240416
  Receipt Date: 20240509
  Transmission Date: 20240716
  Serious: Yes (Other)
  Sender: FDA-Public Use
  Company Number: CA-AMGEN-CANSL2024070060

PATIENT
  Age: 24 Year
  Sex: Female
  Weight: 57 kg

DRUGS (6)
  1. ENBREL [Suspect]
     Active Substance: BENZYL ALCOHOL\ETANERCEPT
     Indication: Juvenile idiopathic arthritis
     Dosage: 50 MG, WEEKLY
     Route: 058
     Dates: start: 202303
  2. ENBREL [Suspect]
     Active Substance: BENZYL ALCOHOL\ETANERCEPT
     Indication: Rheumatoid arthritis
     Dosage: 25 MG, 2X/WEEK
     Route: 058
     Dates: start: 20050516, end: 202303
  3. METHOTREXATE SODIUM [Concomitant]
     Active Substance: METHOTREXATE SODIUM
     Dosage: 16 MILLIGRAM, QWK
     Route: 048
     Dates: start: 1993, end: 2006
  4. SIMPONI [Concomitant]
     Active Substance: GOLIMUMAB
     Dosage: 100 MG
     Route: 058
     Dates: start: 2022
  5. PLAQUENIL [Concomitant]
     Active Substance: HYDROXYCHLOROQUINE SULFATE
     Dosage: 200 MILLIGRAM, BID
     Dates: start: 1986, end: 2010
  6. NAPROXEN [Concomitant]
     Active Substance: NAPROXEN
     Dosage: UNK

REACTIONS (8)
  - Uveitis [Not Recovered/Not Resolved]
  - Rheumatoid arthritis [Not Recovered/Not Resolved]
  - Juvenile idiopathic arthritis [Unknown]
  - Aspiration joint [Unknown]
  - Eczema [Unknown]
  - Asthma [Unknown]
  - Temporomandibular pain and dysfunction syndrome [Unknown]
  - Osteoarthritis [Unknown]

NARRATIVE: CASE EVENT DATE: 20050101
